FAERS Safety Report 7237449-8 (Version None)
Quarter: 2011Q1

REPORT INFORMATION
  Report Type: 
  Country: None (occurrence: None)
  Receive Date: 20110111
  Receipt Date: 20101227
  Transmission Date: 20110831
  Serious: Yes (Hospitalization)
  Sender: FDA-Public Use
  Company Number: 2010005686

PATIENT
  Age: 81 Year
  Sex: Female

DRUGS (10)
  1. CLONAZEPAM [Concomitant]
  2. NIVADIL (NILVADIPINE) [Concomitant]
  3. SELBEX (TEPRENONE) [Concomitant]
  4. SYMMETREL [Concomitant]
  5. OXYCONTIN [Concomitant]
  6. OPSO (MORPHINE) [Concomitant]
  7. VOLTAREN [Concomitant]
  8. ERLOTINIB (ERLOTINIB) (TABLET) (ERLOTINIB) [Suspect]
     Indication: LUNG ADENOCARCINOMA
     Dosage: (150 MG,1 IN 1 D),ORAL
     Route: 048
     Dates: start: 20090414, end: 20090904
  9. GASMOTIN (MOSAPRIDE CITRATE) [Concomitant]
  10. TAKEPRON (LANSOPRAZOLE) [Concomitant]

REACTIONS (2)
  - PYELONEPHRITIS [None]
  - SEPSIS [None]
